FAERS Safety Report 15318821 (Version 1)
Quarter: 2018Q3

REPORT INFORMATION
  Report Type: Spontaneous
  Country: US (occurrence: US)
  Receive Date: 20180817
  Receipt Date: 20180817
  Transmission Date: 20181010
  Serious: Yes (Life-Threatening)
  Sender: FDA-Public Use
  Company Number: None

PATIENT
  Age: 62 Year
  Sex: Female
  Weight: 99.45 kg

DRUGS (1)
  1. LEVOTHYROXINE GENERIC [Suspect]
     Active Substance: LEVOTHYROXINE
     Indication: HYPOTHYROIDISM
     Dosage: ?          QUANTITY:90 TABLET(S);?
     Route: 048
     Dates: start: 19980801

REACTIONS (6)
  - Anxiety [None]
  - Palpitations [None]
  - Tachycardia [None]
  - Product substitution issue [None]
  - Anaphylactic reaction [None]
  - Insurance issue [None]

NARRATIVE: CASE EVENT DATE: 20100101
